FAERS Safety Report 19900436 (Version 1)
Quarter: 2021Q3

REPORT INFORMATION
  Report Type: Spontaneous
  Country: US (occurrence: US)
  Receive Date: 20210929
  Receipt Date: 20210929
  Transmission Date: 20211014
  Serious: Yes (Other)
  Sender: FDA-Public Use
  Company Number: US-BAYER-2021A217375

PATIENT
  Age: 68 Year
  Sex: Male

DRUGS (2)
  1. CHOLESTEROL [Concomitant]
     Active Substance: CHOLESTEROL
     Dosage: UNK
  2. BAYER ASPIRIN [Suspect]
     Active Substance: ASPIRIN
     Indication: PAIN
     Dosage: 3 DF
     Route: 048
     Dates: start: 20210924, end: 20210924

REACTIONS (2)
  - Expired product administered [Unknown]
  - Foreign body in throat [Not Recovered/Not Resolved]

NARRATIVE: CASE EVENT DATE: 20210924
